FAERS Safety Report 13994318 (Version 1)
Quarter: 2017Q3

REPORT INFORMATION
  Report Type: Spontaneous
  Country: BR (occurrence: BR)
  Receive Date: 20170920
  Receipt Date: 20170920
  Transmission Date: 20171128
  Serious: Yes (Other)
  Sender: FDA-Public Use
  Company Number: PHHY2017BR136144

PATIENT
  Sex: Male
  Weight: 60 kg

DRUGS (1)
  1. FORASEQ [Suspect]
     Active Substance: BUDESONIDE\FORMOTEROL FUMARATE
     Indication: EMPHYSEMA
     Dosage: UNK UNK, BID
     Route: 055
     Dates: start: 2010

REACTIONS (3)
  - Dyspnoea [Recovering/Resolving]
  - Hypoacusis [Recovering/Resolving]
  - Dry mouth [Recovering/Resolving]
